FAERS Safety Report 7361716-0 (Version None)
Quarter: 2011Q1

REPORT INFORMATION
  Report Type: 
  Country: None (occurrence: None)
  Receive Date: 20110318
  Receipt Date: 20100323
  Transmission Date: 20110831
  Serious: No
  Sender: FDA-Public Use
  Company Number: US-PFIZER INC-2010037973

PATIENT
  Sex: Male
  Weight: 92.97 kg

DRUGS (6)
  1. NASONEX [Concomitant]
     Dosage: UNK
  2. LEVOTHYROXINE [Concomitant]
     Indication: THYROID DISORDER
     Dosage: UNK
  3. VICODIN [Concomitant]
     Dosage: UNK
  4. NICOTROL [Suspect]
     Indication: SMOKING CESSATION THERAPY
     Dosage: UNK
     Dates: start: 20090101
  5. IBUPROFEN [Concomitant]
     Indication: ARTHRITIS
     Dosage: UNK
  6. CRESTOR [Concomitant]

REACTIONS (1)
  - NASAL DISCOMFORT [None]
